FAERS Safety Report 9598915 (Version 2)
Quarter: 2013Q4

REPORT INFORMATION
  Report Type: Spontaneous
  Country: US (occurrence: US)
  Receive Date: 20131004
  Receipt Date: 20131004
  Transmission Date: 20140711
  Serious: No
  Sender: FDA-Public Use
  Company Number: US-AMGEN-USASP2013018133

PATIENT
  Age: 60 Year
  Sex: Female
  Weight: 90.7 kg

DRUGS (12)
  1. ENBREL [Suspect]
     Indication: PRODUCT USED FOR UNKNOWN INDICATION
     Dosage: 50 MG, QWK
     Route: 058
  2. VITAMIN C                          /00008001/ [Concomitant]
     Dosage: 500 MG, UNK
  3. MULTIVITAMINS, PLAIN [Concomitant]
     Dosage: UNK
  4. POTASSIUM [Concomitant]
     Dosage: 75 MG, UNK
  5. MAGNESIUM [Concomitant]
     Dosage: 300 MG, UNK
  6. FISH OIL [Concomitant]
     Dosage: UNK
  7. METHOTREXATE [Concomitant]
     Dosage: 2.5 MG, UNK
  8. FOLIC ACID [Concomitant]
     Dosage: UNK
  9. ULTRAM                             /00599202/ [Concomitant]
     Dosage: 50 MG, UNK
  10. MOBIC [Concomitant]
     Dosage: 7.5 MG, UNK
  11. PREDNISONE [Concomitant]
     Dosage: 10 MG, UNK
  12. PRILOSEC                           /00661201/ [Concomitant]
     Dosage: 10 MG, UNK

REACTIONS (2)
  - Sinusitis [Unknown]
  - Ear infection [Unknown]
